FAERS Safety Report 26193109 (Version 2)
Quarter: 2025Q4

REPORT INFORMATION
  Report Type: Spontaneous
  Country: US (occurrence: US)
  Receive Date: 20251223
  Receipt Date: 20251223
  Transmission Date: 20260117
  Serious: Yes (Death, Hospitalization, Other)
  Sender: GILEAD
  Company Number: US-GILEAD-2025-0741358

PATIENT
  Age: 64 Year
  Sex: Male
  Weight: 72 kg

DRUGS (1)
  1. YESCARTA [Suspect]
     Active Substance: AXICABTAGENE CILOLEUCEL
     Indication: Diffuse large B-cell lymphoma recurrent
     Dosage: 68 ML
     Route: 042
     Dates: start: 20250730, end: 20250730

REACTIONS (12)
  - Septic shock [Fatal]
  - Cardio-respiratory arrest [Fatal]
  - Diffuse large B-cell lymphoma [Fatal]
  - Cytokine release syndrome [Recovering/Resolving]
  - Immune effector cell-associated neurotoxicity syndrome [Recovering/Resolving]
  - Malnutrition [Recovering/Resolving]
  - Clostridium difficile colitis [Recovered/Resolved]
  - Small intestinal obstruction [Not Recovered/Not Resolved]
  - Pneumonia [Recovering/Resolving]
  - Staphylococcal bacteraemia [Recovering/Resolving]
  - Pulmonary embolism [Unknown]
  - Nervous system disorder [Not Recovered/Not Resolved]

NARRATIVE: CASE EVENT DATE: 20251119
